FAERS Safety Report 11470280 (Version 2)
Quarter: 2015Q3

REPORT INFORMATION
  Report Type: Spontaneous
  Country: US (occurrence: US)
  Receive Date: 20150903
  Receipt Date: 20150903
  Transmission Date: 20151125
  Serious: No
  Sender: FDA-Public Use
  Company Number: US-ELI_LILLY_AND_COMPANY-US201111007499

PATIENT
  Age: 65 Year
  Sex: Female

DRUGS (6)
  1. TEMAZEPAM. [Concomitant]
     Active Substance: TEMAZEPAM
     Dosage: 30 MG, EACH EVENING
  2. CYMBALTA [Suspect]
     Active Substance: DULOXETINE HYDROCHLORIDE
     Indication: GENERALISED ANXIETY DISORDER
     Dosage: 60 MG, QD
     Dates: start: 201106
  3. CYMBALTA [Suspect]
     Active Substance: DULOXETINE HYDROCHLORIDE
     Dosage: 120 MG, QD
  4. CYMBALTA [Suspect]
     Active Substance: DULOXETINE HYDROCHLORIDE
     Dosage: 30 MG, QD
  5. CYMBALTA [Suspect]
     Active Substance: DULOXETINE HYDROCHLORIDE
     Dosage: 60 MG, QD
  6. DIAZEPAM. [Concomitant]
     Active Substance: DIAZEPAM
     Dosage: 2.5 MG, QD

REACTIONS (7)
  - Anxiety [Recovering/Resolving]
  - Tension headache [Not Recovered/Not Resolved]
  - Headache [Recovered/Resolved]
  - Elevated mood [Unknown]
  - Drug effect incomplete [Not Recovered/Not Resolved]
  - Lethargy [Unknown]
  - Tremor [Not Recovered/Not Resolved]
